FAERS Safety Report 6480145-5 (Version None)
Quarter: 2009Q4

REPORT INFORMATION
  Report Type: 
  Country: None (occurrence: None)
  Receive Date: 20091208
  Receipt Date: 20091130
  Transmission Date: 20100525
  Serious: Yes (Hospitalization)
  Sender: FDA-Public Use
  Company Number: US-JNJFOC-20091201262

PATIENT
  Sex: Male

DRUGS (2)
  1. REGRANEX [Suspect]
     Route: 061
     Dates: start: 20070101
  2. REGRANEX [Suspect]
     Indication: DIABETIC FOOT
     Route: 061
     Dates: start: 20070101

REACTIONS (5)
  - EXPIRED DRUG ADMINISTERED [None]
  - PRODUCT QUALITY ISSUE [None]
  - SKIN ULCER [None]
  - STAPHYLOCOCCAL INFECTION [None]
  - TOE AMPUTATION [None]
